FAERS Safety Report 9372695 (Version 1)
Quarter: 2013Q2

REPORT INFORMATION
  Report Type: Spontaneous
  Country: US (occurrence: US)
  Receive Date: 20130627
  Receipt Date: 20130627
  Transmission Date: 20140414
  Serious: Yes (Death)
  Sender: FDA-Public Use
  Company Number: US-MYLANLABS-2013S1005992

PATIENT
  Age: 23 Year
  Sex: Male

DRUGS (17)
  1. CLOZAPINE TABLETS [Suspect]
     Route: 048
     Dates: start: 20130219, end: 2013
  2. CLOZAPINE TABLETS [Suspect]
     Route: 048
     Dates: start: 2013, end: 20130311
  3. CLOZAPINE TABLETS [Suspect]
     Route: 048
     Dates: start: 20130312, end: 20130312
  4. ZITHROMAX [Concomitant]
     Route: 042
     Dates: start: 20130313, end: 20130313
  5. QUETIAPINE [Concomitant]
     Dosage: 25MG AT 0800 AND 1200, 600MG HS
     Dates: start: 20130215, end: 20130313
  6. INVEGA /05724801/ [Concomitant]
     Dates: start: 20130221, end: 20130311
  7. INVEGA SUSTENNA [Concomitant]
     Dosage: X1 ON 21-FEB-2013 AND 28-FEB-2013
     Dates: start: 20130221, end: 20130228
  8. DEPAKOTE [Concomitant]
     Dosage: EXTENDED RELEASE
     Dates: start: 20130222, end: 20130311
  9. PROVENTIL [Concomitant]
     Indication: DYSPNOEA
     Dosage: Q6HR PRN
     Dates: start: 20130215, end: 20130311
  10. DIAZEPAM [Concomitant]
     Dosage: PRN
     Route: 042
     Dates: start: 20130311, end: 20130313
  11. PROZAC [Concomitant]
     Dates: start: 20130215
  12. IBUPROFEN [Concomitant]
     Dosage: PRN
     Dates: start: 20130311, end: 20130313
  13. METOPROLOL [Concomitant]
     Dosage: PRN
     Dates: start: 20130313
  14. COUMADIN [Concomitant]
     Dates: start: 20130311, end: 20130312
  15. KEFLEX [Concomitant]
     Dates: start: 20130310, end: 20130311
  16. HEPARIN [Concomitant]
     Dosage: WEIGHT BASED PROTOCOL
     Dates: start: 20130310
  17. LOVENOX [Concomitant]
     Dates: start: 20130311, end: 20130313

REACTIONS (3)
  - Respiratory arrest [Fatal]
  - Pulmonary embolism [Fatal]
  - Deep vein thrombosis [Fatal]
